FAERS Safety Report 5258307-4 (Version None)
Quarter: 2007Q1

REPORT INFORMATION
  Report Type: 
  Country: None (occurrence: None)
  Receive Date: 20070307
  Receipt Date: 20070307
  Transmission Date: 20070707
  Serious: No
  Sender: FDA-Public Use
  Company Number: None

PATIENT
  Age: 29 Year
  Sex: Female
  Weight: 90.7194 kg

DRUGS (2)
  1. SUBOXONE [Suspect]
     Dosage: DAILY
  2. LUNESTA [Suspect]
     Dosage: PRN

REACTIONS (1)
  - SKIN DISCOLOURATION [None]
